FAERS Safety Report 17107506 (Version 1)
Quarter: 2019Q4

REPORT INFORMATION
  Report Type: Spontaneous
  Country: US (occurrence: US)
  Receive Date: 20191203
  Receipt Date: 20191203
  Transmission Date: 20200122
  Serious: No
  Sender: FDA-Public Use
  Company Number: US-GLAXOSMITHKLINE-US2019GSK216961

PATIENT
  Age: 71 Year
  Sex: Male

DRUGS (1)
  1. VOLTAREN [Suspect]
     Active Substance: DICLOFENAC SODIUM
     Indication: PAIN
     Dosage: UNK (USING ABOUT A WEEK)
     Route: 005
     Dates: start: 20191120

REACTIONS (4)
  - Product use in unapproved indication [Unknown]
  - Expired product administered [Unknown]
  - Product use issue [Unknown]
  - Prescription drug used without a prescription [Unknown]
